FAERS Safety Report 4264779-4 (Version None)
Quarter: 2004Q1

REPORT INFORMATION
  Report Type: 
  Country: None (occurrence: None)
  Receive Date: 20040105
  Receipt Date: 20031218
  Transmission Date: 20041129
  Serious: Yes (Congenital Anomaly)
  Sender: FDA-Public Use
  Company Number: STA-AE-03-MTX-200

PATIENT
  Sex: Male

DRUGS (2)
  1. METHOTREXATE [Suspect]
     Indication: ABORTION INDUCED
     Dosage: 50 MG/M^2 BETWEEN 4-8 WKS GESTATION AND AT 10 WKS GESTATION, UNK
  2. METHOTREXATE [Suspect]
     Indication: ECTOPIC PREGNANCY
     Dosage: 50 MG/M^2 BETWEEN 4-8 WKS GESTATION AND AT 10 WKS GESTATION, UNK

REACTIONS (10)
  - CONGENITAL ANOMALY [None]
  - CONGENITAL EYE DISORDER [None]
  - CONGENITAL NOSE MALFORMATION [None]
  - FOETAL GROWTH RETARDATION [None]
  - HYPERTELORISM OF ORBIT [None]
  - HYPERTONIA [None]
  - MATERNAL DRUGS AFFECTING FOETUS [None]
  - MICROGNATHIA [None]
  - PLAGIOCEPHALY [None]
  - SKULL MALFORMATION [None]
